FAERS Safety Report 8960709 (Version 1)
Quarter: 2012Q4

REPORT INFORMATION
  Report Type: Spontaneous
  Country: US (occurrence: None)
  Receive Date: 20121207
  Receipt Date: 20121207
  Transmission Date: 20130627
  Serious: Yes (Other)
  Sender: FDA-Public Use
  Company Number: None

PATIENT
  Age: 86 Year
  Sex: Male
  Weight: 74.84 kg

DRUGS (1)
  1. GELNIQUE [Suspect]
     Indication: INCONTINENCE
     Dosage: measured pumps once daily transdermal
     Route: 062
     Dates: start: 20121015, end: 20121128

REACTIONS (3)
  - Abnormal behaviour [None]
  - Hallucination [None]
  - Confusional state [None]
